FAERS Safety Report 18961308 (Version 1)
Quarter: 2021Q1

REPORT INFORMATION
  Report Type: Spontaneous
  Country: FR (occurrence: FR)
  Receive Date: 20210303
  Receipt Date: 20210303
  Transmission Date: 20210420
  Serious: Yes (Death)
  Sender: FDA-Public Use
  Company Number: FR-GRANULES-FR-2021GRALIT00171

PATIENT

DRUGS (1)
  1. IBUPROFEN. [Suspect]
     Active Substance: IBUPROFEN
     Indication: PATENT DUCTUS ARTERIOSUS
     Dosage: 10 MG/KG ON DAY 1; 5 MG/KG ON DAY 2 AND DAY 3
     Route: 065

REACTIONS (2)
  - Death [Fatal]
  - Off label use [Unknown]
